FAERS Safety Report 14184822 (Version 1)
Quarter: 2017Q4

REPORT INFORMATION
  Report Type: Spontaneous
  Country: US (occurrence: None)
  Receive Date: 20171111
  Receipt Date: 20171111
  Transmission Date: 20180321
  Serious: No
  Sender: FDA-Public Use
  Company Number: None

PATIENT
  Age: 57 Year
  Sex: Female

DRUGS (1)
  1. TALTZ [Suspect]
     Active Substance: IXEKIZUMAB
     Dates: start: 20170901, end: 20171110

REACTIONS (5)
  - Pruritus generalised [None]
  - Vertigo [None]
  - Injection site reaction [None]
  - Injection site swelling [None]
  - Urticaria [None]

NARRATIVE: CASE EVENT DATE: 20171110
